FAERS Safety Report 8911592 (Version 2)
Quarter: 2013Q2

REPORT INFORMATION
  Report Type: Spontaneous
  Country: BR (occurrence: BR)
  Receive Date: 20121115
  Receipt Date: 20130403
  Transmission Date: 20140414
  Serious: Yes (Other)
  Sender: FDA-Public Use
  Company Number: BR-ABBOTT-12P-020-1007197-00

PATIENT
  Sex: Male
  Weight: 63 kg

DRUGS (8)
  1. DEPAKENE [Suspect]
     Indication: CONVULSION PROPHYLAXIS
     Route: 048
  2. DEPAKENE [Suspect]
     Route: 048
  3. DEPAKENE [Suspect]
     Dosage: 7:00AM 10ML, AT 15:00PM 10 ML AND UNKNOWN DOSE AT NIGHT TO COMPLETE 1250 MG
     Route: 048
  4. DEPAKENE [Suspect]
     Dates: start: 2011
  5. OLANZAPINE [Concomitant]
     Indication: AGGRESSION
  6. OLANZAPINE [Concomitant]
     Indication: SCHIZOPHRENIA
  7. OLANZAPINE [Concomitant]
     Indication: AFFECTIVE DISORDER
  8. EXELON [Concomitant]
     Indication: DEMENTIA ALZHEIMER^S TYPE

REACTIONS (9)
  - Convulsion [Recovering/Resolving]
  - Insomnia [Recovered/Resolved]
  - Tremor [Recovering/Resolving]
  - Salivary hypersecretion [Recovering/Resolving]
  - Urine odour abnormal [Recovering/Resolving]
  - Urine abnormality [Recovering/Resolving]
  - Urine output decreased [Recovering/Resolving]
  - Fluid intake reduced [Recovering/Resolving]
  - Apathy [Recovering/Resolving]
